FAERS Safety Report 8543236-0 (Version None)
Quarter: 2012Q2

REPORT INFORMATION
  Report Type: 
  Country: None (occurrence: None)
  Receive Date: 20120412
  Receipt Date: 20090922
  Transmission Date: 20120825
  Serious: Yes (Other)
  Sender: FDA-Public Use
  Company Number: PHEH2008US04164

PATIENT
  Age: 47 Year
  Sex: Male
  Weight: 86.2 kg

DRUGS (3)
  1. CHEMOTHERAPEUTICS NOS (NO INGREDIENTS/SUBSTANCES) [Concomitant]
  2. ZOMETA [Suspect]
     Dosage: 4MG
  3. AREDIA [Suspect]
     Dosage: 90MG

REACTIONS (24)
  - PAIN IN EXTREMITY [None]
  - INJURY [None]
  - SPINAL OSTEOARTHRITIS [None]
  - HEPATOMEGALY [None]
  - LUMBAR RADICULOPATHY [None]
  - NERVE ROOT INJURY LUMBAR [None]
  - OSTEOPOROSIS [None]
  - PAIN [None]
  - ANXIETY [None]
  - ANHEDONIA [None]
  - BONE DISORDER [None]
  - COMPRESSION FRACTURE [None]
  - OSTEONECROSIS [None]
  - BACK PAIN [None]
  - DISABILITY [None]
  - INTERSTITIAL LUNG DISEASE [None]
  - PNEUMONIA [None]
  - TOOTH EXTRACTION [None]
  - OSTEOPENIA [None]
  - HEPATIC STEATOSIS [None]
  - CARDIOMEGALY [None]
  - NEPHROLITHIASIS [None]
  - ARTHROPATHY [None]
  - INTERVERTEBRAL DISC PROTRUSION [None]
